FAERS Safety Report 13665506 (Version 1)
Quarter: 2017Q2

REPORT INFORMATION
  Report Type: Spontaneous
  Country: FR (occurrence: FR)
  Receive Date: 20170619
  Receipt Date: 20170619
  Transmission Date: 20170830
  Serious: Yes (Other)
  Sender: FDA-Public Use
  Company Number: FR-BAYER-2017-113538

PATIENT
  Age: 44 Year
  Sex: Female
  Weight: 60 kg

DRUGS (1)
  1. MIRENA [Suspect]
     Active Substance: LEVONORGESTREL
     Indication: CHEMICAL CONTRACEPTION
     Dosage: 20 MCG/24HR, CONT
     Route: 015
     Dates: start: 20131122, end: 20150522

REACTIONS (10)
  - Migraine with aura [Unknown]
  - Amnesia [Unknown]
  - Myalgia [Unknown]
  - Fatigue [Unknown]
  - Bone pain [Unknown]
  - Nausea [Unknown]
  - Migraine [Unknown]
  - Vertigo [Unknown]
  - Libido disorder [Unknown]
  - Arrhythmia [Recovering/Resolving]

NARRATIVE: CASE EVENT DATE: 2014
